FAERS Safety Report 8561369-X (Version None)
Quarter: 2012Q3

REPORT INFORMATION
  Report Type: 
  Country: None (occurrence: None)
  Receive Date: 20120802
  Receipt Date: 20120712
  Transmission Date: 20120928
  Serious: No
  Sender: FDA-Public Use
  Company Number: US-ASTRAZENECA-2012SE48272

PATIENT
  Age: 69 Year
  Sex: Female

DRUGS (9)
  1. COZAAR [Concomitant]
  2. CEPHALEXIN [Concomitant]
     Indication: PROPHYLAXIS URINARY TRACT INFECTION
  3. FLONASE [Concomitant]
  4. HYDRALAZINE HCL [Concomitant]
  5. XANAX [Concomitant]
  6. PULMICORT FLEXHALER [Suspect]
     Indication: ASTHMA
     Route: 055
  7. CLARITIN [Concomitant]
  8. CARAFATE [Concomitant]
  9. PEPCID [Concomitant]

REACTIONS (2)
  - DRUG DOSE OMISSION [None]
  - CHOKING [None]
